FAERS Safety Report 12268343 (Version 2)
Quarter: 2016Q2

REPORT INFORMATION
  Report Type: Spontaneous
  Country: US (occurrence: US)
  Receive Date: 20160414
  Receipt Date: 20160614
  Transmission Date: 20160815
  Serious: Yes (Other)
  Sender: FDA-Public Use
  Company Number: US-PFIZER INC-2016208781

PATIENT
  Age: 27 Year
  Sex: Male
  Weight: 86.18 kg

DRUGS (1)
  1. CHANTIX [Suspect]
     Active Substance: VARENICLINE TARTRATE
     Indication: SMOKING CESSATION THERAPY
     Dosage: 0.5 MG, 1X/DAY
     Route: 048
     Dates: start: 20160404, end: 20160406

REACTIONS (6)
  - Swelling face [Recovered/Resolved]
  - Aphthous ulcer [Not Recovered/Not Resolved]
  - Skin exfoliation [Recovered/Resolved]
  - Stomatitis [Not Recovered/Not Resolved]
  - Oral mucosal exfoliation [Recovered/Resolved with Sequelae]
  - Stevens-Johnson syndrome [Unknown]

NARRATIVE: CASE EVENT DATE: 20160406
